FAERS Safety Report 22623444 (Version 1)
Quarter: 2023Q2

REPORT INFORMATION
  Report Type: Spontaneous
  Country: US (occurrence: US)
  Receive Date: 20230621
  Receipt Date: 20230621
  Transmission Date: 20230722
  Serious: Yes (Hospitalization)
  Sender: FDA-Public Use
  Company Number: US-BRISTOL-MYERS SQUIBB COMPANY-2023-086940

PATIENT
  Age: 80 Year
  Sex: Female
  Weight: 55.7 kg

DRUGS (1)
  1. REVLIMID [Suspect]
     Active Substance: LENALIDOMIDE
     Indication: Plasma cell myeloma
     Dosage: DOSE: 15 MG; FREQ: 21 DAYS, 7 BREAK
     Route: 048
     Dates: start: 20230103

REACTIONS (1)
  - Mental disorder [Unknown]
